FAERS Safety Report 4332754-7 (Version None)
Quarter: 2004Q1

REPORT INFORMATION
  Report Type: 
  Country: None (occurrence: None)
  Receive Date: 20040330
  Receipt Date: 20040317
  Transmission Date: 20041129
  Serious: No
  Sender: FDA-Public Use
  Company Number: 2004AP01733

PATIENT
  Age: 34 Year
  Sex: Female
  Weight: 43 kg

DRUGS (4)
  1. DIPRIVAN [Suspect]
     Indication: GENERAL ANAESTHESIA
     Dosage: 162 MG
  2. NITROUS OXIDE [Concomitant]
  3. SEVOFLURANE [Concomitant]
  4. FENTANYL [Concomitant]

REACTIONS (4)
  - COMA [None]
  - DELAYED RECOVERY FROM ANAESTHESIA [None]
  - EYE ROLLING [None]
  - UNRESPONSIVE TO PAIN STIMULI [None]
